FAERS Safety Report 17289330 (Version 1)
Quarter: 2020Q1

REPORT INFORMATION
  Report Type: Spontaneous
  Country: US (occurrence: US)
  Receive Date: 20200120
  Receipt Date: 20200120
  Transmission Date: 20200409
  Serious: Yes (Hospitalization, Other)
  Sender: FDA-Public Use
  Company Number: US-TASMAN PHARMA, INC.-2020TSM00002

PATIENT
  Age: 57 Year
  Sex: Male

DRUGS (8)
  1. DIVALPROEX EXTENDED RELEASE [Concomitant]
     Dosage: 500 MG, 2X/DAY
     Route: 065
  2. MIRALAX [Concomitant]
     Active Substance: POLYETHYLENE GLYCOL 3350
     Route: 065
  3. DOCUSATE [Concomitant]
     Active Substance: DOCUSATE
     Route: 065
  4. SENNA [Concomitant]
     Active Substance: SENNA LEAF\SENNOSIDES\SENNOSIDES A AND B
     Route: 065
  5. CLOZAPINE. [Suspect]
     Active Substance: CLOZAPINE
     Indication: SCHIZOAFFECTIVE DISORDER BIPOLAR TYPE
     Dosage: 1400 MG, 1X/DAY (500 MG IN THE MORNING AND 900 MG IN THE EVENING)
     Route: 065
  6. MULTIPLE VITAMIN [Concomitant]
     Active Substance: VITAMINS
     Dosage: UNK, 1X/DAY
     Route: 065
  7. NICOTINE. [Concomitant]
     Active Substance: NICOTINE
     Dosage: 14 MG, 1X/DAY (^PATCH^)
     Route: 065
  8. LEVOTHYROXINE. [Concomitant]
     Active Substance: LEVOTHYROXINE
     Dosage: 0.25 MG, 1X/DAY
     Route: 065

REACTIONS (8)
  - Hyperkalaemia [Unknown]
  - Seizure [Recovered/Resolved]
  - Serotonin syndrome [Unknown]
  - Constipation [Unknown]
  - Subdural haematoma [Unknown]
  - Fall [Recovered/Resolved]
  - Dehydration [Unknown]
  - Withdrawal syndrome [Recovered/Resolved]
